FAERS Safety Report 7384207 (Version 12)
Quarter: 2014Q2

REPORT INFORMATION
  Report Type: Spontaneous
  Country: CA (occurrence: CA)
  Receive Date: 20100511
  Receipt Date: 20140417
  Transmission Date: 20141212
  Serious: Yes (Other)
  Sender: FDA-Public Use
  Company Number: CA-ROCHE-GNE301475

PATIENT
  Age: 44 Year
  Sex: Male
  Weight: 77 kg

DRUGS (9)
  1. XOLAIR [Suspect]
     Indication: ASTHMA
     Route: 058
     Dates: start: 20050708
  2. XOLAIR [Suspect]
     Route: 058
     Dates: start: 20050718
  3. XOLAIR [Suspect]
     Route: 065
     Dates: start: 20091130
  4. XOLAIR [Suspect]
     Route: 058
     Dates: start: 20131217
  5. SYMBICORT [Concomitant]
  6. ADVAIR [Concomitant]
     Route: 065
  7. SINGULAR [Concomitant]
  8. NASONEX [Concomitant]
  9. ZADITOR [Concomitant]

REACTIONS (15)
  - Asthma [Unknown]
  - Lacrimation increased [Unknown]
  - Eye pruritus [Unknown]
  - Wheezing [Recovering/Resolving]
  - Cough [Unknown]
  - Chest discomfort [Unknown]
  - Nasopharyngitis [Recovering/Resolving]
  - Nasal congestion [Unknown]
  - Headache [Unknown]
  - Sinus headache [Unknown]
  - Lymphadenopathy [Unknown]
  - Bronchitis [Recovered/Resolved]
  - Hypertension [Not Recovered/Not Resolved]
  - Peripheral coldness [Unknown]
  - Breath sounds abnormal [Unknown]
